FAERS Safety Report 7464708-6 (Version None)
Quarter: 2011Q2

REPORT INFORMATION
  Report Type: 
  Country: None (occurrence: None)
  Receive Date: 20110429
  Receipt Date: 20110429
  Transmission Date: 20111010
  Serious: Yes (Disabling)
  Sender: FDA-Public Use
  Company Number: None

PATIENT
  Age: 75 Year
  Sex: Male
  Weight: 76.2043 kg

DRUGS (2)
  1. ZOCOR [Suspect]
     Indication: BLOOD CHOLESTEROL
  2. LIPITOR [Suspect]
     Indication: BLOOD CHOLESTEROL

REACTIONS (8)
  - BALANCE DISORDER [None]
  - LIVER FUNCTION TEST ABNORMAL [None]
  - PAIN IN EXTREMITY [None]
  - DISCOMFORT [None]
  - WALKING AID USER [None]
  - GAIT DISTURBANCE [None]
  - MUSCLE INJURY [None]
  - LIVER INJURY [None]
